FAERS Safety Report 4452902-8 (Version None)
Quarter: 2004Q3

REPORT INFORMATION
  Report Type: 
  Country: None (occurrence: None)
  Receive Date: 20040916
  Receipt Date: 20040907
  Transmission Date: 20050211
  Serious: Yes (Other)
  Sender: FDA-Public Use
  Company Number: 2004053225

PATIENT
  Age: 3 Month
  Sex: Female
  Weight: 4.8988 kg

DRUGS (2)
  1. ZYRTEC [Suspect]
     Indication: GASTROOESOPHAGEAL REFLUX DISEASE
     Dosage: 0.9 ML (0.3 ML, 3 IN 1 D), ORAL
     Route: 048
     Dates: start: 20040618, end: 20040725
  2. CAFFEINE (CAFFEINE) [Suspect]
     Indication: ILL-DEFINED DISORDER

REACTIONS (8)
  - AGITATION [None]
  - APNOEA [None]
  - CHOKING [None]
  - CONDITION AGGRAVATED [None]
  - HEART RATE DECREASED [None]
  - IRRITABILITY [None]
  - MEDICATION ERROR [None]
  - RESTLESSNESS [None]
